FAERS Safety Report 5242254-8 (Version None)
Quarter: 2007Q1

REPORT INFORMATION
  Report Type: 
  Country: None (occurrence: None)
  Receive Date: 20070216
  Receipt Date: 20070216
  Transmission Date: 20070707
  Serious: Yes (Hospitalization)
  Sender: FDA-Public Use
  Company Number: None

PATIENT
  Age: 68 Year
  Sex: Male
  Weight: 67.7 kg

DRUGS (2)
  1. GEMCITABINE [Suspect]
     Indication: PANCREATIC CARCINOMA METASTATIC
     Dosage: 800 MG/M2   D1 + D8 Q 21 DAYS  IV
     Route: 042
     Dates: start: 20070102, end: 20070116
  2. GLEEVEC [Suspect]
     Indication: PANCREATIC CARCINOMA METASTATIC
     Dosage: 300 MG  D1-14 Q 21 DAYS  PO
     Route: 048
     Dates: start: 20070102, end: 20070122

REACTIONS (10)
  - ABDOMINAL PAIN [None]
  - ALANINE AMINOTRANSFERASE INCREASED [None]
  - ANOREXIA [None]
  - ASPARTATE AMINOTRANSFERASE INCREASED [None]
  - BACK PAIN [None]
  - BLOOD ALKALINE PHOSPHATASE INCREASED [None]
  - FATIGUE [None]
  - INTESTINAL PERFORATION [None]
  - JAUNDICE [None]
  - PERITONITIS [None]
